FAERS Safety Report 4555277-9 (Version None)
Quarter: 2005Q1

REPORT INFORMATION
  Report Type: 
  Country: None (occurrence: None)
  Receive Date: 20041227
  Receipt Date: 20040809
  Transmission Date: 20050727
  Serious: No
  Sender: FDA-Public Use
  Company Number: US086526

PATIENT
  Age: 80 Year
  Sex: Female

DRUGS (1)
  1. ARANESP [Suspect]
     Indication: ANAEMIA
     Dosage: 1 IN 2 WEEKS
     Dates: start: 20040101, end: 20040101

REACTIONS (2)
  - PETECHIAE [None]
  - RASH PRURITIC [None]
